FAERS Safety Report 19625309 (Version 7)
Quarter: 2022Q2

REPORT INFORMATION
  Report Type: Report from Study
  Country: US (occurrence: US)
  Receive Date: 20210729
  Receipt Date: 20220429
  Transmission Date: 20220720
  Serious: No
  Sender: FDA-Public Use
  Company Number: NVSC2021US159427

PATIENT
  Sex: Female

DRUGS (1)
  1. KESIMPTA [Suspect]
     Active Substance: OFATUMUMAB
     Indication: Relapsing multiple sclerosis
     Dosage: 20 MG (BENEATH THE SKIN)
     Route: 058

REACTIONS (6)
  - Tremor [Unknown]
  - Asthenia [Unknown]
  - Myalgia [Unknown]
  - Pyrexia [Unknown]
  - Malaise [Unknown]
  - Herpes zoster [Unknown]
